FAERS Safety Report 7213544-4 (Version None)
Quarter: 2011Q1

REPORT INFORMATION
  Report Type: 
  Country: None (occurrence: None)
  Receive Date: 20110106
  Receipt Date: 20101231
  Transmission Date: 20110831
  Serious: Yes (Hospitalization)
  Sender: FDA-Public Use
  Company Number: US-PFIZER INC-2011000023

PATIENT
  Sex: Male

DRUGS (1)
  1. CHANTIX [Suspect]
     Indication: SMOKING CESSATION THERAPY
     Dosage: UNK
     Dates: start: 20100401

REACTIONS (6)
  - AGITATION [None]
  - CONFUSIONAL STATE [None]
  - SUICIDAL IDEATION [None]
  - PARANOIA [None]
  - DEPRESSED MOOD [None]
  - HALLUCINATION [None]
